FAERS Safety Report 18700905 (Version 1)
Quarter: 2021Q1

REPORT INFORMATION
  Report Type: Spontaneous
  Country: US (occurrence: US)
  Receive Date: 20210104
  Receipt Date: 20210104
  Transmission Date: 20210419
  Serious: No
  Sender: FDA-Public Use
  Company Number: None

PATIENT
  Sex: Female

DRUGS (1)
  1. KESIMPTA [Suspect]
     Active Substance: OFATUMUMAB
     Indication: MULTIPLE SCLEROSIS
     Dosage: ?          OTHER DOSE:20MG/0.4ML;?FREQUENCY: ONCE WEEKLY FOR 3 DOSES, AND THEN 20 MG ONCE MONTHLY STARTING ON WEEK 4?
     Route: 058
     Dates: start: 20201208

REACTIONS (1)
  - Incorrect dose administered [None]
